FAERS Safety Report 18538705 (Version 2)
Quarter: 2021Q1

REPORT INFORMATION
  Report Type: Spontaneous
  Country: US (occurrence: US)
  Receive Date: 20201124
  Receipt Date: 20210301
  Transmission Date: 20210419
  Serious: Yes (Life-Threatening, Hospitalization, Other)
  Sender: FDA-Public Use
  Company Number: US-DRREDDYS-USA/USA/20/0129341

PATIENT
  Age: 26 Year
  Sex: Male

DRUGS (7)
  1. VENLAFAXINE HYDROCHLORIDE. [Concomitant]
     Active Substance: VENLAFAXINE HYDROCHLORIDE
     Indication: CATATONIA
  2. OLANZAPINE TABLETS 2.5 MG, 5 MG, 7.5 MG, 10 MG [Concomitant]
     Active Substance: OLANZAPINE
     Indication: SCHIZOAFFECTIVE DISORDER DEPRESSIVE TYPE
  3. VENLAFAXINE HYDROCHLORIDE. [Concomitant]
     Active Substance: VENLAFAXINE HYDROCHLORIDE
     Indication: SCHIZOAFFECTIVE DISORDER DEPRESSIVE TYPE
  4. LORAZEPAM INJECTION USP, 2 MG/ML AND 4 MG/ML [Suspect]
     Active Substance: LORAZEPAM
     Indication: CATATONIA
  5. TRAZODONE [Concomitant]
     Active Substance: TRAZODONE HYDROCHLORIDE
     Indication: CATATONIA
  6. OLANZAPINE TABLETS 2.5 MG, 5 MG, 7.5 MG, 10 MG [Concomitant]
     Active Substance: OLANZAPINE
     Indication: CATATONIA
  7. TRAZODONE [Concomitant]
     Active Substance: TRAZODONE HYDROCHLORIDE
     Indication: SCHIZOAFFECTIVE DISORDER DEPRESSIVE TYPE

REACTIONS (10)
  - Status epilepticus [Recovered/Resolved]
  - Generalised tonic-clonic seizure [Recovered/Resolved]
  - Hyperhidrosis [Recovered/Resolved]
  - Tachycardia [Recovered/Resolved]
  - Hypotension [Recovered/Resolved]
  - Psychomotor retardation [Recovered/Resolved]
  - Withdrawal syndrome [Recovered/Resolved]
  - Partial seizures [Recovered/Resolved]
  - Withdrawal catatonia [Recovered/Resolved]
  - Delirium [Recovered/Resolved]
